FAERS Safety Report 24755229 (Version 1)
Quarter: 2024Q4

REPORT INFORMATION
  Report Type: Spontaneous
  Country: US (occurrence: None)
  Receive Date: 20241218
  Receipt Date: 20241218
  Transmission Date: 20250115
  Serious: No
  Sender: Public
  Company Number: None

PATIENT
  Age: 63 Year
  Sex: Male

DRUGS (1)
  1. MOLNUPIRAVIR [Suspect]
     Active Substance: MOLNUPIRAVIR
     Indication: Pain
     Dosage: FREQUENCY : TWICE A DAY;?
     Route: 065
     Dates: start: 20220621, end: 20220626

REACTIONS (3)
  - Dizziness [None]
  - Dizziness [None]
  - Neuropathy peripheral [None]

NARRATIVE: CASE EVENT DATE: 20220701
